FAERS Safety Report 15813183 (Version 1)
Quarter: 2019Q1

REPORT INFORMATION
  Report Type: Spontaneous
  Country: US (occurrence: US)
  Receive Date: 20190111
  Receipt Date: 20190111
  Transmission Date: 20190417
  Serious: Yes (Other)
  Sender: FDA-Public Use
  Company Number: US-FRESENIUS KABI-FK201900234

PATIENT
  Age: 2 Year
  Sex: Female

DRUGS (1)
  1. PROPOFOL (MANUFACTURER UNKNOWN) [Suspect]
     Active Substance: PROPOFOL
     Indication: ANAESTHESIA
     Route: 042

REACTIONS (4)
  - Apnoea [Recovered/Resolved]
  - Accidental overdose [Recovered/Resolved]
  - Obstructive airways disorder [Recovered/Resolved]
  - Device programming error [Recovered/Resolved]
